FAERS Safety Report 7755732-4 (Version None)
Quarter: 2011Q3

REPORT INFORMATION
  Report Type: 
  Country: None (occurrence: None)
  Receive Date: 20110915
  Receipt Date: 20110915
  Transmission Date: 20111222
  Serious: Yes (Hospitalization)
  Sender: FDA-Public Use
  Company Number: None

PATIENT
  Sex: Female

DRUGS (1)
  1. HYLAND'S BABY TEETHING TABLETS [Suspect]
     Indication: TEETHING
     Dosage: PRN 1 TABLET
     Dates: start: 20110903

REACTIONS (2)
  - UNRESPONSIVE TO STIMULI [None]
  - MIOSIS [None]
